FAERS Safety Report 10855873 (Version 1)
Quarter: 2015Q1

REPORT INFORMATION
  Report Type: Spontaneous
  Country: US (occurrence: None)
  Receive Date: 20150218
  Receipt Date: 20150218
  Transmission Date: 20150721
  Serious: No
  Sender: FDA-Public Use
  Company Number: None

PATIENT
  Age: 23 Year
  Sex: Female
  Weight: 49.9 kg

DRUGS (2)
  1. XULANE PATCH [Concomitant]
  2. XULANE [Suspect]
     Active Substance: ETHINYL ESTRADIOL\NORELGESTROMIN
     Dosage: BIRTH CONTROL PATCH, ONCE A WEEK, APPLIED AS MEDICATED PATCH TO SKIN

REACTIONS (7)
  - Application site bruise [None]
  - Application site erythema [None]
  - Application site rash [None]
  - Application site irritation [None]
  - Application site haemorrhage [None]
  - Application site pruritus [None]
  - Application site pain [None]

NARRATIVE: CASE EVENT DATE: 20150215
